FAERS Safety Report 4635273-3 (Version None)
Quarter: 2005Q2

REPORT INFORMATION
  Report Type: 
  Country: None (occurrence: None)
  Receive Date: 20050411
  Receipt Date: 20050330
  Transmission Date: 20051028
  Serious: Yes (Other)
  Sender: FDA-Public Use
  Company Number: HQWYE187101NOV04

PATIENT
  Age: 56 Year
  Sex: Male
  Weight: 81.72 kg

DRUGS (2)
  1. ADVIL [Suspect]
     Indication: BACK PAIN
     Dosage: 2 TABLETS AS NEEDED, ORAL
     Route: 048
     Dates: start: 20000101, end: 20040728
  2. ADVIL [Suspect]
     Indication: HEADACHE
     Dosage: 2 TABLETS AS NEEDED, ORAL
     Route: 048
     Dates: start: 20000101, end: 20040728

REACTIONS (21)
  - APHONIA [None]
  - BLOOD ALCOHOL INCREASED [None]
  - BLOOD CHLORIDE INCREASED [None]
  - BLOOD GLUCOSE INCREASED [None]
  - CHEST DISCOMFORT [None]
  - DYSPNOEA [None]
  - ERYTHEMA [None]
  - FLUSHING [None]
  - FOAMING AT MOUTH [None]
  - HEART RATE DECREASED [None]
  - HYPERHIDROSIS [None]
  - HYPERSENSITIVITY [None]
  - LYMPHOCYTE PERCENTAGE DECREASED [None]
  - MEAN CELL VOLUME DECREASED [None]
  - NEUTROPHIL PERCENTAGE INCREASED [None]
  - OEDEMA PERIPHERAL [None]
  - PCO2 DECREASED [None]
  - PRURITUS [None]
  - RESPIRATORY RATE INCREASED [None]
  - SWELLING FACE [None]
  - VISION BLURRED [None]
